FAERS Safety Report 5331141-2 (Version None)
Quarter: 2007Q2

REPORT INFORMATION
  Report Type: 
  Country: None (occurrence: None)
  Receive Date: 20070518
  Receipt Date: 20070518
  Transmission Date: 20071010
  Serious: Yes (Hospitalization)
  Sender: FDA-Public Use
  Company Number: None

PATIENT
  Sex: Male
  Weight: 63 kg

DRUGS (2)
  1. CISPLATIN [Suspect]
     Dosage: 160 MG
     Dates: end: 20070507
  2. HYPERTENSIVE MEDICATION [Concomitant]

REACTIONS (7)
  - ASTHENIA [None]
  - BLOOD PRESSURE DECREASED [None]
  - DEHYDRATION [None]
  - DIARRHOEA [None]
  - FALL [None]
  - HEART RATE DECREASED [None]
  - ORAL INTAKE REDUCED [None]
